FAERS Safety Report 5076074-4 (Version None)
Quarter: 2006Q3

REPORT INFORMATION
  Report Type: 
  Country: None (occurrence: None)
  Receive Date: 20060804
  Receipt Date: 20060727
  Transmission Date: 20061208
  Serious: Yes (Life-Threatening)
  Sender: FDA-Public Use
  Company Number: T200600784

PATIENT
  Age: 75 Year
  Sex: Female
  Weight: 41 kg

DRUGS (11)
  1. OPTIRAY 240 [Suspect]
     Indication: COMPUTERISED TOMOGRAM
     Dosage: 100 MI, SINGLE, INTRAVENOUS
     Route: 042
     Dates: start: 20060714, end: 20060714
  2. FERROMIA /00023516/ (FERROUS CITRATE) TABLET, 50 MG [Concomitant]
  3. NIVADIL (NILVADIPINE) TABLET [Concomitant]
  4. MUCOSTA (REBAMIPIDE) TABLET [Concomitant]
  5. RABEPRAZOLE SODIUM [Concomitant]
  6. URSENNID /00142207/ (SENNA ALEXANDRINA LEAF) TABLET [Concomitant]
  7. SOLDEM 3 (SODIUM LACTATE, SODIUM CHLORIDE, POTASSIUM CHLORIDE, GLUCOSE [Concomitant]
  8. RADICUT (EDARAVONE) INJECTION [Concomitant]
  9. ASCORBIC ACID [Concomitant]
  10. BITAMEDIN INJECTION [Concomitant]
  11. HEPARIN [Concomitant]

REACTIONS (7)
  - BLOOD PRESSURE DECREASED [None]
  - CONTRAST MEDIA REACTION [None]
  - DEPRESSED LEVEL OF CONSCIOUSNESS [None]
  - FEELING COLD [None]
  - RESPIRATORY ARREST [None]
  - SHOCK [None]
  - WHEEZING [None]
